FAERS Safety Report 9943312 (Version 2)
Quarter: 2014Q1

REPORT INFORMATION
  Report Type: Spontaneous
  Country: GB (occurrence: GB)
  Receive Date: 20140303
  Receipt Date: 20140318
  Transmission Date: 20141002
  Serious: Yes (Hospitalization, Other)
  Sender: FDA-Public Use
  Company Number: GB-ACTAVIS-2014-03286

PATIENT
  Age: 40 Year
  Sex: Female
  Weight: 64 kg

DRUGS (4)
  1. FLUOROURACIL (UNKNOWN) [Suspect]
     Indication: BREAST CANCER
     Dosage: UNK
     Route: 042
     Dates: start: 201311
  2. CYCLOPHOSPHAMIDE (UNKNOWN) [Suspect]
     Indication: BREAST CANCER
     Dosage: UNK
     Route: 042
     Dates: start: 201311
  3. EPIRUBICIN (UNKNOWN) [Suspect]
     Indication: BREAST CANCER
     Dosage: UNK
     Route: 042
     Dates: start: 201311
  4. NEULASTA [Suspect]
     Indication: CHEMOTHERAPY
     Dosage: UNK; 3/52, PREFILLED SYRINGE
     Route: 058
     Dates: start: 20131120

REACTIONS (4)
  - Neutropenic sepsis [Recovered/Resolved]
  - Febrile neutropenia [Recovered/Resolved]
  - Tremor [Unknown]
  - Malaise [Unknown]
